FAERS Safety Report 5279986-1 (Version None)
Quarter: 2007Q1

REPORT INFORMATION
  Report Type: 
  Country: None (occurrence: None)
  Receive Date: 20061215
  Receipt Date: 20060718
  Transmission Date: 20070707
  Serious: Yes (Other)
  Sender: FDA-Public Use
  Company Number: HQWYE192120JUL06

PATIENT
  Sex: Male

DRUGS (1)
  1. EFFEXOR XR [Suspect]
     Dosage: 225 MG
     Dates: end: 20060701

REACTIONS (5)
  - CONVULSION [None]
  - DEPRESSION [None]
  - FEELING ABNORMAL [None]
  - MUSCLE SPASMS [None]
  - MYOCLONUS [None]
